FAERS Safety Report 22237993 (Version 2)
Quarter: 2023Q2

REPORT INFORMATION
  Report Type: Spontaneous
  Country: US (occurrence: None)
  Receive Date: 20230421
  Receipt Date: 20230503
  Transmission Date: 20230722
  Serious: Yes (Other)
  Sender: FDA-Public Use
  Company Number: US-Hikma Pharmaceuticals USA Inc.-US-H14001-23-01165

PATIENT
  Sex: Female

DRUGS (1)
  1. PREDNISONE [Suspect]
     Active Substance: PREDNISONE
     Indication: Product used for unknown indication
     Dosage: UNKNOWN
     Route: 065

REACTIONS (28)
  - Skin cancer [Unknown]
  - Skin reaction [Unknown]
  - Pain [Unknown]
  - Lymphadenopathy [Unknown]
  - Joint stiffness [Unknown]
  - Migraine [Unknown]
  - Hallucination [Unknown]
  - Fatigue [Unknown]
  - Alopecia [Unknown]
  - Polyp [Unknown]
  - Thrombosis [Unknown]
  - Uterine cyst [Unknown]
  - Gastrointestinal disorder [Unknown]
  - Osteopenia [Unknown]
  - Mental disorder [Unknown]
  - Vertigo [Unknown]
  - Insomnia [Unknown]
  - Influenza like illness [Unknown]
  - Mass [Unknown]
  - Condition aggravated [Unknown]
  - Rash [Unknown]
  - Skin exfoliation [Unknown]
  - Photosensitivity reaction [Unknown]
  - Scar [Unknown]
  - Weight increased [Unknown]
  - Steroid diabetes [Unknown]
  - Headache [Unknown]
  - Skin infection [Unknown]
